FAERS Safety Report 4441298-3 (Version None)
Quarter: 2004Q3

REPORT INFORMATION
  Report Type: 
  Country: None (occurrence: None)
  Receive Date: 20040728
  Receipt Date: 20040416
  Transmission Date: 20050211
  Serious: No
  Sender: FDA-Public Use
  Company Number: USA040363392

PATIENT
  Age: 13 Year
  Sex: Female
  Weight: 39 kg

DRUGS (2)
  1. STRATTERA [Suspect]
     Indication: ATTENTION DEFICIT/HYPERACTIVITY DISORDER
     Dosage: 25 MG DAY
     Dates: start: 20040329
  2. GENTAMYCIN SULFATE [Concomitant]

REACTIONS (9)
  - FATIGUE [None]
  - FEELING ABNORMAL [None]
  - HEADACHE [None]
  - NASAL CONGESTION [None]
  - NAUSEA [None]
  - PALLOR [None]
  - PYREXIA [None]
  - RHINORRHOEA [None]
  - SOMNOLENCE [None]
